FAERS Safety Report 21244286 (Version 1)
Quarter: 2022Q3

REPORT INFORMATION
  Report Type: Report from Study
  Country: CO (occurrence: CO)
  Receive Date: 20220823
  Receipt Date: 20220823
  Transmission Date: 20221027
  Serious: Yes (Other)
  Sender: FDA-Public Use
  Company Number: CO-22-2421

PATIENT
  Age: 56 Year
  Sex: Female

DRUGS (1)
  1. CERTOLIZUMAB PEGOL [Suspect]
     Active Substance: CERTOLIZUMAB PEGOL
     Indication: Rheumatoid arthritis
     Dosage: 400 MILLIGRAM, EV 4 WEEKS
     Route: 058
     Dates: start: 20191028, end: 20220604

REACTIONS (3)
  - Ulcerative keratitis [Recovering/Resolving]
  - Corneal infection [Recovering/Resolving]
  - Eye operation [Unknown]

NARRATIVE: CASE EVENT DATE: 20220712
